FAERS Safety Report 20561254 (Version 1)
Quarter: 2022Q1

REPORT INFORMATION
  Report Type: Spontaneous
  Country: US (occurrence: US)
  Receive Date: 20220307
  Receipt Date: 20220307
  Transmission Date: 20220423
  Serious: Yes (Death, Hospitalization, Disabling, Other)
  Sender: FDA-Public Use
  Company Number: US-009507513-1810USA005862

PATIENT
  Sex: Female

DRUGS (30)
  1. LOSARTAN POTASSIUM [Suspect]
     Active Substance: LOSARTAN POTASSIUM
     Dosage: UNK
     Route: 048
  2. ZOSTAVAX [Suspect]
     Active Substance: VARICELLA-ZOSTER VIRUS STRAIN OKA/MERCK LIVE ANTIGEN
     Indication: Routine health maintenance
     Dosage: UNK
     Route: 065
     Dates: start: 20120424, end: 2012
  3. ZOSTAVAX [Suspect]
     Active Substance: VARICELLA-ZOSTER VIRUS STRAIN OKA/MERCK LIVE ANTIGEN
     Indication: Prophylaxis
  4. CYMBALTA [Suspect]
     Active Substance: DULOXETINE HYDROCHLORIDE
     Dosage: UNK
  5. OXYCODONE [Suspect]
     Active Substance: OXYCODONE
     Indication: Pain
     Dosage: 1 TABLET, Q8H PRN
     Route: 048
  6. LEVOXYL [Suspect]
     Active Substance: LEVOTHYROXINE SODIUM
     Indication: Hypothyroidism
     Dosage: 175 MICROGRAM
     Dates: start: 1991
  7. LIPITOR [Suspect]
     Active Substance: ATORVASTATIN CALCIUM
     Indication: Stent placement
     Dosage: 80 MILLIGRAM
     Dates: start: 2003
  8. OMEPRAZOLE [Suspect]
     Active Substance: OMEPRAZOLE
     Indication: Dyspepsia
     Dosage: 40 MILLIGRAM
     Dates: start: 2003
  9. AMLODIPINE [Suspect]
     Active Substance: AMLODIPINE BESYLATE
     Dosage: UNK
  10. VITAMIN D [Suspect]
     Active Substance: VITAMIN D NOS
     Dosage: UNK
  11. TRAVATAN [Suspect]
     Active Substance: TRAVOPROST
     Dosage: UNK
  12. ASPIRIN [Suspect]
     Active Substance: ASPIRIN
     Dosage: UNK
  13. METOPROLOL SUCCINATE [Suspect]
     Active Substance: METOPROLOL SUCCINATE
     Dosage: UNK
  14. PROAIR HFA [Suspect]
     Active Substance: ALBUTEROL SULFATE
     Dosage: UNK
  15. TRIAMCINOLONE [Suspect]
     Active Substance: TRIAMCINOLONE
     Dosage: UNK
  16. ISOSORBIDE MONONITRATE [Suspect]
     Active Substance: ISOSORBIDE MONONITRATE
     Dosage: UNK
  17. WARFARIN [Suspect]
     Active Substance: WARFARIN
     Dosage: UNK
  18. LASIX [Suspect]
     Active Substance: FUROSEMIDE
     Dosage: UNK
  19. LUMIGAN [Suspect]
     Active Substance: BIMATOPROST
     Dosage: UNK
  20. DILTIAZEM [Suspect]
     Active Substance: DILTIAZEM
     Dosage: UNK
  21. AMIODARONE [Suspect]
     Active Substance: AMIODARONE
     Dosage: UNK
  22. MIRALAX [Suspect]
     Active Substance: POLYETHYLENE GLYCOL 3350
     Dosage: UNK
  23. VALTREX [Suspect]
     Active Substance: VALACYCLOVIR HYDROCHLORIDE
     Dosage: UNK
  24. DOCUSATE\SENNOSIDES [Suspect]
     Active Substance: DOCUSATE\SENNOSIDES
     Dosage: UNK
  25. XANAX [Suspect]
     Active Substance: ALPRAZOLAM
     Dosage: UNK
  26. ZAROXOLYN [Suspect]
     Active Substance: METOLAZONE
     Dosage: UNK
  27. MICONAZOLE [Suspect]
     Active Substance: MICONAZOLE
     Dosage: UNK
  28. LORAZEPAM [Suspect]
     Active Substance: LORAZEPAM
     Dosage: UNK
  29. BUMEX [Suspect]
     Active Substance: BUMETANIDE
     Dosage: UNK
  30. SPIRONOLACTONE [Suspect]
     Active Substance: SPIRONOLACTONE
     Dosage: UNK

REACTIONS (33)
  - Colitis ischaemic [Fatal]
  - Acute kidney injury [Unknown]
  - Atrial fibrillation [Unknown]
  - Cardiac failure congestive [Unknown]
  - Pneumonia [Unknown]
  - Ill-defined disorder [Not Recovered/Not Resolved]
  - Hypokalaemia [Unknown]
  - Pulmonary hypertension [Unknown]
  - Cardiac failure acute [Unknown]
  - Myocardial ischaemia [Unknown]
  - Anaemia [Unknown]
  - Anticoagulation drug level above therapeutic [Unknown]
  - Emphysema [Unknown]
  - Depression [Unknown]
  - Anxiety [Unknown]
  - Fall [Unknown]
  - Head injury [Unknown]
  - Micturition urgency [Unknown]
  - Nasopharyngitis [Unknown]
  - Oesophagitis [Unknown]
  - Oral candidiasis [Unknown]
  - Pollakiuria [Unknown]
  - Post herpetic neuralgia [Unknown]
  - Psoriasis [Unknown]
  - Sleep disorder due to a general medical condition [Unknown]
  - Weight fluctuation [Unknown]
  - Herpes zoster [Unknown]
  - Obesity [Unknown]
  - Blood pressure increased [Unknown]
  - Kidney congestion [Unknown]
  - Rash [Unknown]
  - Pain in extremity [Not Recovered/Not Resolved]
  - Hypoaesthesia [Not Recovered/Not Resolved]

NARRATIVE: CASE EVENT DATE: 20140401
